FAERS Safety Report 16467892 (Version 1)
Quarter: 2019Q2

REPORT INFORMATION
  Report Type: Spontaneous
  Country: FR (occurrence: FR)
  Receive Date: 20190624
  Receipt Date: 20190624
  Transmission Date: 20190711
  Serious: Yes (Other)
  Sender: FDA-Public Use
  Company Number: FR-ACCORD-134239

PATIENT
  Age: 78 Year
  Sex: Female

DRUGS (1)
  1. PACLITAXEL ACCORD [Suspect]
     Active Substance: PACLITAXEL
     Indication: HER-2 POSITIVE BREAST CANCER
     Route: 041
     Dates: start: 20190412

REACTIONS (2)
  - Diarrhoea [Recovered/Resolved]
  - Weight loss poor [Recovered/Resolved]

NARRATIVE: CASE EVENT DATE: 20190420
